FAERS Safety Report 12262174 (Version 1)
Quarter: 2016Q2

REPORT INFORMATION
  Report Type: Spontaneous
  Country: ES (occurrence: ES)
  Receive Date: 20160413
  Receipt Date: 20160413
  Transmission Date: 20160815
  Serious: Yes (Death, Hospitalization, Congenital Anomaly, Other)
  Sender: FDA-Public Use
  Company Number: ES-GLAXOSMITHKLINE-ES2016046819

PATIENT

DRUGS (1)
  1. MALARONE [Suspect]
     Active Substance: ATOVAQUONE\PROGUANIL HYDROCHLORIDE
     Indication: MALARIA PROPHYLAXIS
     Dosage: UNK
     Route: 064
     Dates: start: 20150707, end: 201508

REACTIONS (5)
  - Dilatation ventricular [Fatal]
  - Foetal exposure during pregnancy [Fatal]
  - Oesophageal atresia [Fatal]
  - Congenital central nervous system anomaly [Fatal]
  - Interruption of aortic arch [Fatal]

NARRATIVE: CASE EVENT DATE: 20150707
